FAERS Safety Report 23714928 (Version 1)
Quarter: 2024Q2

REPORT INFORMATION
  Report Type: Spontaneous
  Country: US (occurrence: US)
  Receive Date: 20240406
  Receipt Date: 20240406
  Transmission Date: 20240716
  Serious: Yes (Hospitalization)
  Sender: FDA-Public Use
  Company Number: US-MSNLABS-2024MSNLIT00818

PATIENT

DRUGS (3)
  1. LURASIDONE HYDROCHLORIDE [Suspect]
     Active Substance: LURASIDONE HYDROCHLORIDE
     Indication: Affective disorder
     Route: 065
  2. LURASIDONE HYDROCHLORIDE [Suspect]
     Active Substance: LURASIDONE HYDROCHLORIDE
     Route: 065
  3. AMPHETAMINE [Suspect]
     Active Substance: AMPHETAMINE
     Indication: Attention deficit hyperactivity disorder
     Route: 065

REACTIONS (2)
  - Dyskinesia [Recovered/Resolved]
  - Withdrawal syndrome [Recovered/Resolved]
